FAERS Safety Report 17653339 (Version 2)
Quarter: 2020Q3

REPORT INFORMATION
  Report Type: Report from Study
  Country: US (occurrence: US)
  Receive Date: 20200410
  Receipt Date: 20200929
  Transmission Date: 20201102
  Serious: No
  Sender: FDA-Public Use
  Company Number: US-SA-2020SA088500

PATIENT

DRUGS (1)
  1. DUPILUMAB [Suspect]
     Active Substance: DUPILUMAB
     Indication: NASAL POLYPS
     Dosage: 300 MG, QOW
     Route: 058
     Dates: start: 20200303, end: 20200324

REACTIONS (5)
  - Skin texture abnormal [Unknown]
  - Tremor [Recovered/Resolved]
  - Muscle spasms [Unknown]
  - Muscle twitching [Unknown]
  - Off label use [Unknown]

NARRATIVE: CASE EVENT DATE: 2020
